FAERS Safety Report 16857825 (Version 1)
Quarter: 2019Q3

REPORT INFORMATION
  Report Type: Spontaneous
  Country: AU (occurrence: AU)
  Receive Date: 20190926
  Receipt Date: 20190926
  Transmission Date: 20191005
  Serious: Yes (Hospitalization)
  Sender: FDA-Public Use
  Company Number: AU-ABBVIE-19K-008-2936172-00

PATIENT
  Sex: Male

DRUGS (3)
  1. HUMIRA [Suspect]
     Active Substance: ADALIMUMAB
     Indication: COLITIS ULCERATIVE
     Route: 058
     Dates: start: 20190405, end: 20190405
  2. HUMIRA [Suspect]
     Active Substance: ADALIMUMAB
     Route: 058
     Dates: start: 20190406, end: 20190406
  3. HUMIRA [Suspect]
     Active Substance: ADALIMUMAB
     Route: 058
     Dates: start: 20190420, end: 20190420

REACTIONS (22)
  - Malaise [Unknown]
  - Haematoma [Unknown]
  - Normocytic anaemia [Unknown]
  - Pyrexia [Unknown]
  - Pruritus [Not Recovered/Not Resolved]
  - Rash [Unknown]
  - Mucosal disorder [Unknown]
  - Night sweats [Unknown]
  - Proctitis ulcerative [Not Recovered/Not Resolved]
  - Cough [Recovered/Resolved]
  - Granuloma [Unknown]
  - Skin reaction [Unknown]
  - Mood swings [Unknown]
  - Chromaturia [Unknown]
  - Anaemia macrocytic [Unknown]
  - Drug hypersensitivity [Unknown]
  - Haemorrhage [Unknown]
  - Blood pressure decreased [Unknown]
  - Blood immunoglobulin E abnormal [Unknown]
  - Tachycardia [Unknown]
  - Epistaxis [Unknown]
  - Eosinophilia [Unknown]

NARRATIVE: CASE EVENT DATE: 2019
